FAERS Safety Report 8533827-5 (Version None)
Quarter: 2012Q3

REPORT INFORMATION
  Report Type: 
  Country: None (occurrence: None)
  Receive Date: 20120724
  Receipt Date: 20120712
  Transmission Date: 20120928
  Serious: Yes (Hospitalization)
  Sender: FDA-Public Use
  Company Number: US-ROCHE-1088165

PATIENT
  Age: 65 Year
  Sex: Female
  Weight: 82.174 kg

DRUGS (10)
  1. OXYCODONE HCL [Concomitant]
  2. SYMBICORT [Concomitant]
  3. OMALIZUMAB [Suspect]
     Indication: ASTHMA
     Route: 058
     Dates: start: 20120705, end: 20120705
  4. QNASL [Concomitant]
  5. ALBUTEROL [Concomitant]
  6. CARISOPRODOL [Concomitant]
  7. METROPOLOL COMP [Concomitant]
  8. XOPENEX [Concomitant]
  9. AZELASTINE HCL [Concomitant]
  10. DIOVAN [Concomitant]

REACTIONS (5)
  - HEADACHE [None]
  - THROAT IRRITATION [None]
  - PARAESTHESIA ORAL [None]
  - ANAPHYLACTIC REACTION [None]
  - WHEEZING [None]
